FAERS Safety Report 7768264-4 (Version None)
Quarter: 2011Q3

REPORT INFORMATION
  Report Type: 
  Country: None (occurrence: None)
  Receive Date: 20110922
  Receipt Date: 20101013
  Transmission Date: 20111222
  Serious: No
  Sender: FDA-Public Use
  Company Number: US-ASTRAZENECA-2010SE42536

PATIENT
  Age: 43 Year
  Sex: Female
  Weight: 96.2 kg

DRUGS (7)
  1. SEROQUEL [Suspect]
     Indication: SLEEP DISORDER
     Route: 048
  2. PROZAC [Concomitant]
  3. XANAX [Concomitant]
  4. ZONEGRAN [Concomitant]
  5. SEROQUEL [Suspect]
     Route: 048
     Dates: start: 20100901
  6. PRILOSEC [Concomitant]
  7. SEROQUEL [Suspect]
     Route: 048

REACTIONS (6)
  - WEIGHT INCREASED [None]
  - FATIGUE [None]
  - SEDATION [None]
  - DECREASED APPETITE [None]
  - INCORRECT DOSE ADMINISTERED [None]
  - HYPERSOMNIA [None]
